FAERS Safety Report 11358819 (Version 1)
Quarter: 2015Q3

REPORT INFORMATION
  Report Type: Spontaneous
  Country: US (occurrence: None)
  Receive Date: 20150807
  Receipt Date: 20150807
  Transmission Date: 20151125
  Serious: Yes (Life-Threatening, Hospitalization)
  Sender: FDA-Public Use
  Company Number: None

PATIENT
  Age: 5 Year
  Sex: Female
  Weight: 24.04 kg

DRUGS (1)
  1. WAL-DRYL ALLERGY [Suspect]
     Active Substance: DIPHENHYDRAMINE HYDROCHLORIDE
     Indication: HYPERSENSITIVITY
     Route: 048
     Dates: start: 20150805, end: 20150805

REACTIONS (4)
  - Tachycardia [None]
  - Product packaging issue [None]
  - Lethargy [None]
  - Accidental exposure to product by child [None]

NARRATIVE: CASE EVENT DATE: 20150805
